FAERS Safety Report 7582222-4 (Version None)
Quarter: 2011Q2

REPORT INFORMATION
  Report Type: 
  Country: None (occurrence: None)
  Receive Date: 20110622
  Receipt Date: 20110613
  Transmission Date: 20111010
  Serious: Yes (Disabling)
  Sender: FDA-Public Use
  Company Number: 2011SP016873

PATIENT
  Age: 68 Year
  Sex: Male
  Weight: 61.8 kg

DRUGS (2)
  1. REBETOL [Suspect]
     Indication: HEPATITIS C
     Dosage: 800 MG, QD, PO
     Route: 048
     Dates: start: 20090901, end: 20091201
  2. PEG-INTRON [Suspect]
     Indication: HEPATITIS C
     Dosage: 100 MCG, QW; SC
     Route: 058
     Dates: start: 20090901, end: 20091201

REACTIONS (1)
  - RENAL FAILURE CHRONIC [None]
